FAERS Safety Report 23200172 (Version 1)
Quarter: 2023Q4

REPORT INFORMATION
  Report Type: Spontaneous
  Country: MA (occurrence: MA)
  Receive Date: 20231118
  Receipt Date: 20231118
  Transmission Date: 20240110
  Serious: Yes (Death, Other)
  Sender: FDA-Public Use
  Company Number: MA-AMGEN LTD-MARSP2023204966

PATIENT
  Sex: Male

DRUGS (2)
  1. ADALIMUMAB [Suspect]
     Active Substance: ADALIMUMAB\ISOPROPYL ALCOHOL
     Indication: Uveitis
     Dosage: UNK
     Route: 065
  2. AZATHIOPRINE [Concomitant]
     Active Substance: AZATHIOPRINE
     Indication: Immunosuppression
     Dosage: UNK
     Route: 065

REACTIONS (2)
  - Death [Fatal]
  - Meningitis tuberculous [Unknown]

NARRATIVE: CASE EVENT DATE: 20220101
